FAERS Safety Report 9025956 (Version 1)
Quarter: 2012Q4

REPORT INFORMATION
  Report Type: Spontaneous
  Country: US (occurrence: None)
  Receive Date: 20121214
  Receipt Date: 20121214
  Transmission Date: 20130627
  Serious: Yes (Hospitalization)
  Sender: FDA-Public Use
  Company Number: None

PATIENT
  Sex: Male
  Weight: 86 kg

DRUGS (3)
  1. CARBOPLATIN [Suspect]
  2. CETUXIMAB [Suspect]
  3. PACLITAXEL (TAXOL) [Suspect]

REACTIONS (7)
  - Asthenia [None]
  - Confusional state [None]
  - Dehydration [None]
  - Electrolyte imbalance [None]
  - Pneumonia [None]
  - Depression [None]
  - General physical health deterioration [None]
